APPROVED DRUG PRODUCT: SULF-10
Active Ingredient: SULFACETAMIDE SODIUM
Strength: 10%
Dosage Form/Route: SOLUTION/DROPS;OPHTHALMIC
Application: A080025 | Product #001
Applicant: NOVARTIS PHARMACEUTICALS CORP
Approved: Approved Prior to Jan 1, 1982 | RLD: No | RS: No | Type: DISCN